FAERS Safety Report 4760184-2 (Version None)
Quarter: 2005Q3

REPORT INFORMATION
  Report Type: 
  Country: None (occurrence: None)
  Receive Date: 20050831
  Receipt Date: 20050831
  Transmission Date: 20060218
  Serious: Yes (Life-Threatening, Hospitalization)
  Sender: FDA-Public Use
  Company Number: None

PATIENT
  Age: 58 Year
  Sex: Male

DRUGS (7)
  1. SIMVASTATIN [Suspect]
  2. SEROQUEL [Concomitant]
  3. TENORMIN [Concomitant]
  4. HYDROCHLOROTHIAZIDE-MICROZIDE [Concomitant]
  5. METFORMIN HCL [Concomitant]
  6. GLUCOTROL [Concomitant]
  7. VALIUM [Concomitant]

REACTIONS (10)
  - AFFECT LABILITY [None]
  - ANGER [None]
  - ANXIETY [None]
  - BLOOD CREATININE INCREASED [None]
  - DISORIENTATION [None]
  - INSOMNIA [None]
  - JUDGEMENT IMPAIRED [None]
  - PAIN IN EXTREMITY [None]
  - PSYCHOTIC DISORDER [None]
  - RHABDOMYOLYSIS [None]
